FAERS Safety Report 12844846 (Version 3)
Quarter: 2018Q2

REPORT INFORMATION
  Report Type: Spontaneous
  Country: PL (occurrence: PL)
  Receive Date: 20161013
  Receipt Date: 20180613
  Transmission Date: 20180711
  Serious: Yes (Life-Threatening, Hospitalization, Other)
  Sender: FDA-Public Use
  Company Number: PL-TEVA-699893ISR

PATIENT
  Age: 78 Year
  Sex: Male

DRUGS (3)
  1. ZOLPIDEM [Suspect]
     Active Substance: ZOLPIDEM\ZOLPIDEM TARTRATE
     Dosage: 200 MILLIGRAM DAILY; 20 TABLETS OF 10 MG EACH
  2. DIGOXIN. [Suspect]
     Active Substance: DIGOXIN
     Dosage: 7.5 MILLIGRAM DAILY; 30 TABLETS OF 0.25 MG EACH
  3. THEOPHYLLIN [Suspect]
     Active Substance: THEOPHYLLINE ANHYDROUS
     Dosage: 4.5 GRAM DAILY; 30 TABLETS OF 150 MG EACH

REACTIONS (12)
  - Toxicity to various agents [Recovered/Resolved]
  - Electrocardiogram repolarisation abnormality [Unknown]
  - Hypotension [Recovered/Resolved]
  - Electrocardiogram abnormal [Unknown]
  - Nodal arrhythmia [Recovered/Resolved]
  - Ventricular extrasystoles [Recovered/Resolved]
  - Conduction disorder [Unknown]
  - Myocardial infarction [Unknown]
  - Laboratory test abnormal [Unknown]
  - Suicide attempt [Recovered/Resolved]
  - Intentional overdose [Recovered/Resolved]
  - Electrocardiogram ST segment depression [Recovered/Resolved]
